FAERS Safety Report 8093978-9 (Version None)
Quarter: 2012Q1

REPORT INFORMATION
  Report Type: 
  Country: None (occurrence: None)
  Receive Date: 20120130
  Receipt Date: 20101119
  Transmission Date: 20120608
  Serious: Yes (Other)
  Sender: FDA-Public Use
  Company Number: JP-BAYER-201046614GPV

PATIENT
  Age: 79 Year
  Sex: Female

DRUGS (1)
  1. SORAFENIB [Suspect]
     Indication: HEPATIC NEOPLASM MALIGNANT
     Dosage: 400 MG (DAILY DOSE), , ORAL
     Route: 048
     Dates: start: 20090801, end: 20090101

REACTIONS (4)
  - RENAL IMPAIRMENT [None]
  - METABOLIC ACIDOSIS [None]
  - TUMOUR LYSIS SYNDROME [None]
  - HYPERURICAEMIA [None]
